FAERS Safety Report 4588324-9 (Version None)
Quarter: 2005Q1

REPORT INFORMATION
  Report Type: 
  Country: None (occurrence: None)
  Receive Date: 20050216
  Receipt Date: 20050208
  Transmission Date: 20050727
  Serious: Yes (Hospitalization)
  Sender: FDA-Public Use
  Company Number: 2005027424

PATIENT
  Age: 69 Year
  Sex: Male

DRUGS (6)
  1. ALDACTONE [Suspect]
     Indication: ILL-DEFINED DISORDER
     Dosage: 50-75 MG (DAILY), ORAL
     Route: 048
     Dates: start: 20040705
  2. PHENYTOIN [Suspect]
     Indication: ILL-DEFINED DISORDER
  3. MENATETRENONE (MENATETRENONE) [Concomitant]
  4. DIMETICONE (DIMETICONE) [Concomitant]
  5. FUROSEMIDE [Concomitant]
  6. LACTITOL (LACTITOL) [Concomitant]

REACTIONS (1)
  - STEVENS-JOHNSON SYNDROME [None]
